FAERS Safety Report 24994942 (Version 1)
Quarter: 2025Q1

REPORT INFORMATION
  Report Type: Spontaneous
  Country: US (occurrence: None)
  Receive Date: 20250220
  Receipt Date: 20250220
  Transmission Date: 20250409
  Serious: Yes (Hospitalization)
  Sender: FDA-CTU
  Company Number: None

PATIENT
  Sex: Male
  Weight: 128.37 kg

DRUGS (2)
  1. WINREVAIR [Suspect]
     Active Substance: SOTATERCEPT-CSRK
     Dosage: FREQUENCY : EVERY THREE WEEKS;?
     Route: 058
     Dates: start: 202410
  2. MACITENTAN\TADALAFIL [Suspect]
     Active Substance: MACITENTAN\TADALAFIL

REACTIONS (3)
  - Food poisoning [None]
  - Therapy change [None]
  - Platelet count decreased [None]
